FAERS Safety Report 21382492 (Version 2)
Quarter: 2023Q2

REPORT INFORMATION
  Report Type: Spontaneous
  Country: CN (occurrence: None)
  Receive Date: 20220927
  Receipt Date: 20230607
  Transmission Date: 20230722
  Serious: Yes (Other)
  Sender: FDA-Public Use
  Company Number: CN-ROCHE-3186162

PATIENT
  Age: 60 Year
  Sex: Male

DRUGS (7)
  1. AVASTIN [Suspect]
     Active Substance: BEVACIZUMAB
     Indication: Glioblastoma
     Route: 065
     Dates: start: 202208
  2. TEMOZOLOMIDE [Concomitant]
     Active Substance: TEMOZOLOMIDE
     Indication: Glioblastoma
     Route: 048
     Dates: start: 20220418
  3. TEMOZOLOMIDE [Concomitant]
     Active Substance: TEMOZOLOMIDE
     Dosage: D1-D5
     Dates: start: 202207
  4. TEMOZOLOMIDE [Concomitant]
     Active Substance: TEMOZOLOMIDE
     Dosage: DAY1-5
     Dates: start: 202208
  5. CISPLATIN [Concomitant]
     Active Substance: CISPLATIN
     Indication: Glioblastoma
     Dates: start: 20220418
  6. NIMOTUZUMAB [Concomitant]
     Active Substance: NIMOTUZUMAB
     Indication: Glioblastoma
     Dates: start: 202209
  7. CAMRELIZUMAB [Concomitant]
     Active Substance: CAMRELIZUMAB
     Indication: Glioblastoma
     Dates: start: 202209

REACTIONS (1)
  - Pneumonitis aspiration [Unknown]

NARRATIVE: CASE EVENT DATE: 20220901
